FAERS Safety Report 13449265 (Version 8)
Quarter: 2018Q1

REPORT INFORMATION
  Report Type: Spontaneous
  Country: IT (occurrence: IT)
  Receive Date: 20170417
  Receipt Date: 20180309
  Transmission Date: 20180508
  Serious: Yes (Other)
  Sender: FDA-Public Use
  Company Number: IT-PFIZER INC-2017153269

PATIENT
  Age: 60 Year
  Sex: Male

DRUGS (4)
  1. RAMIPRIL. [Suspect]
     Active Substance: RAMIPRIL
     Dosage: UNK (TOTAL)
     Route: 048
  2. ATENOLOL. [Suspect]
     Active Substance: ATENOLOL
     Dosage: UNK (TOTAL)
     Route: 048
  3. ATENOLOL. [Suspect]
     Active Substance: ATENOLOL
     Indication: SUICIDAL BEHAVIOUR
     Dosage: 20 DF, UNK
     Route: 048
     Dates: start: 20170228, end: 20170228
  4. RAMIPRIL. [Suspect]
     Active Substance: RAMIPRIL
     Indication: SUICIDAL BEHAVIOUR
     Dosage: UNK
     Route: 048
     Dates: start: 20170228, end: 20170228

REACTIONS (4)
  - Intentional overdose [Unknown]
  - Drug abuse [Unknown]
  - Intentional self-injury [Unknown]
  - Vomiting [Unknown]

NARRATIVE: CASE EVENT DATE: 20170228
